FAERS Safety Report 5020317-X (Version None)
Quarter: 2006Q2

REPORT INFORMATION
  Report Type: 
  Country: None (occurrence: None)
  Receive Date: 20060602
  Receipt Date: 20060530
  Transmission Date: 20061013
  Serious: Yes (Hospitalization)
  Sender: FDA-Public Use
  Company Number: AMAN20060005

PATIENT
  Age: 80 Year
  Sex: Male

DRUGS (8)
  1. MANTADIX (AMANTADINE) 100 MG    BMS [Suspect]
     Indication: PARKINSON'S DISEASE
     Dosage: 2 TABS DAILY PO
     Route: 048
     Dates: start: 20060203, end: 20060218
  2. IKOREL (NICORANDIL) [Suspect]
     Dates: start: 20051206
  3. LASIX [Suspect]
  4. TENORMIN [Suspect]
  5. VASTAREL (TRIMETAZIDINE) [Suspect]
  6. LANSOPRAZOLE [Suspect]
  7. ASPIRIN [Concomitant]
  8. SERECOR [Concomitant]

REACTIONS (1)
  - AGRANULOCYTOSIS [None]
